FAERS Safety Report 17177481 (Version 18)
Quarter: 2025Q3

REPORT INFORMATION
  Report Type: Report from Study
  Country: BR (occurrence: BR)
  Receive Date: 20191219
  Receipt Date: 20250819
  Transmission Date: 20251020
  Serious: Yes (Hospitalization, Other)
  Sender: GLAXOSMITHKLINE
  Company Number: BR-GLAXOSMITHKLINE-BR2017GSK050809

PATIENT
  Age: 48 Year
  Sex: Female
  Weight: 70 kg

DRUGS (9)
  1. BELIMUMAB [Suspect]
     Active Substance: BELIMUMAB
     Indication: Systemic lupus erythematosus
     Dosage: 720 MG, MO
     Dates: start: 20151010
  2. BELIMUMAB [Suspect]
     Active Substance: BELIMUMAB
     Dosage: 120 MG, MO
  3. BELIMUMAB [Suspect]
     Active Substance: BELIMUMAB
     Dosage: 720 MG, Q4W
  4. BELIMUMAB [Suspect]
     Active Substance: BELIMUMAB
     Dosage: UNK UNK, Q4W ((6 X 120 MG EVERY 4 WEEKS)
  5. BELIMUMAB [Suspect]
     Active Substance: BELIMUMAB
  6. VITAMIN B12 [Concomitant]
     Active Substance: CYANOCOBALAMIN
     Indication: Product used for unknown indication
  7. HYDROXYCHLOROQUINE SULFATE [Concomitant]
     Active Substance: HYDROXYCHLOROQUINE SULFATE
     Indication: Systemic lupus erythematosus
  8. DEFLAZACORT [Concomitant]
     Active Substance: DEFLAZACORT
     Indication: Systemic lupus erythematosus
  9. HYDROXYCHLOROQUINE [Concomitant]
     Active Substance: HYDROXYCHLOROQUINE
     Indication: Product used for unknown indication

REACTIONS (37)
  - Postoperative wound infection [Recovered/Resolved]
  - Lymphoma [Recovered/Resolved]
  - Abdominal abscess [Not Recovered/Not Resolved]
  - Carpal tunnel syndrome [Unknown]
  - Infection [Unknown]
  - Gastric infection [Unknown]
  - Decreased immune responsiveness [Unknown]
  - Swelling face [Recovered/Resolved]
  - Inflammation [Recovered/Resolved]
  - Spinal disorder [Recovered/Resolved]
  - Pain [Recovered/Resolved]
  - Lip swelling [Recovered/Resolved]
  - Nocturnal dyspnoea [Recovered/Resolved]
  - Hypoaesthesia oral [Recovered/Resolved]
  - Throat irritation [Recovered/Resolved]
  - Tinea infection [Not Recovered/Not Resolved]
  - Onychomycosis [Not Recovered/Not Resolved]
  - Pharyngeal hypoaesthesia [Recovered/Resolved]
  - Pharyngeal erythema [Unknown]
  - Illness [Unknown]
  - Cough [Recovered/Resolved]
  - Rhinorrhoea [Recovered/Resolved]
  - Purulent discharge [Recovered/Resolved]
  - COVID-19 [Not Recovered/Not Resolved]
  - SARS-CoV-2 test positive [Unknown]
  - Pyrexia [Recovering/Resolving]
  - Ear pain [Recovering/Resolving]
  - Abdominal pain upper [Recovering/Resolving]
  - Feeling abnormal [Recovering/Resolving]
  - Endodontic procedure [Unknown]
  - Weight decreased [Recovered/Resolved]
  - Influenza [Not Recovered/Not Resolved]
  - Sinusitis [Recovered/Resolved]
  - Overdose [Unknown]
  - Circumstance or information capable of leading to medication error [Unknown]
  - Inappropriate schedule of product administration [Unknown]
  - Product dose omission issue [Unknown]

NARRATIVE: CASE EVENT DATE: 20220501
